FAERS Safety Report 5274929-9 (Version None)
Quarter: 2007Q1

REPORT INFORMATION
  Report Type: 
  Country: None (occurrence: None)
  Receive Date: 20061208
  Receipt Date: 20060417
  Transmission Date: 20070707
  Serious: Yes (Hospitalization)
  Sender: FDA-Public Use
  Company Number: 2006UW06726

PATIENT
  Age: 56 Year
  Sex: Female

DRUGS (1)
  1. CRESTOR [Suspect]
     Dates: end: 20060226

REACTIONS (2)
  - MUSCULAR WEAKNESS [None]
  - MYOPATHY [None]
